FAERS Safety Report 13120044 (Version 1)
Quarter: 2017Q1

REPORT INFORMATION
  Report Type: Spontaneous
  Country: US (occurrence: US)
  Receive Date: 20170117
  Receipt Date: 20170117
  Transmission Date: 20170428
  Serious: Yes (Hospitalization, Other)
  Sender: FDA-Public Use
  Company Number: US-DRREDDYS-USA/USA/17/0086196

PATIENT
  Age: 29 Year
  Sex: Female
  Weight: 129.27 kg

DRUGS (2)
  1. SUMATRIPTAN. [Suspect]
     Active Substance: SUMATRIPTAN
     Indication: MIGRAINE
     Route: 065
     Dates: start: 20151106
  2. ONDANSETRON [Suspect]
     Active Substance: ONDANSETRON
     Indication: MIGRAINE
     Route: 048
     Dates: start: 20151106, end: 20151106

REACTIONS (7)
  - Vomiting [Recovering/Resolving]
  - Hypoaesthesia [Recovering/Resolving]
  - Blindness [Recovering/Resolving]
  - Off label use [Unknown]
  - Palpitations [Recovering/Resolving]
  - Unevaluable event [Recovering/Resolving]
  - Impaired gastric emptying [Recovering/Resolving]

NARRATIVE: CASE EVENT DATE: 20151113
